FAERS Safety Report 11010375 (Version 2)
Quarter: 2015Q3

REPORT INFORMATION
  Report Type: Spontaneous
  Country: US (occurrence: US)
  Receive Date: 20150410
  Receipt Date: 20150806
  Transmission Date: 20151125
  Serious: Yes (Hospitalization, Other)
  Sender: FDA-Public Use
  Company Number: US-GLAXOSMITHKLINE-US2015GSK046906

PATIENT
  Age: 82 Year
  Sex: Male

DRUGS (4)
  1. SORIATANE [Suspect]
     Active Substance: ACITRETIN
     Indication: SKIN CANCER
  2. SORIATANE [Suspect]
     Active Substance: ACITRETIN
     Indication: SQUAMOUS CELL CARCINOMA
  3. SORIATANE [Suspect]
     Active Substance: ACITRETIN
     Indication: BASAL CELL CARCINOMA
  4. SORIATANE [Suspect]
     Active Substance: ACITRETIN
     Indication: ACTINIC KERATOSIS
     Dosage: UNK, U
     Route: 065
     Dates: start: 20120506

REACTIONS (2)
  - Cerebrovascular accident [Unknown]
  - Rehabilitation therapy [Unknown]

NARRATIVE: CASE EVENT DATE: 20150128
